FAERS Safety Report 5596282-3 (Version None)
Quarter: 2008Q1

REPORT INFORMATION
  Report Type: 
  Country: None (occurrence: None)
  Receive Date: 20080118
  Receipt Date: 20080108
  Transmission Date: 20080703
  Serious: Yes (Other)
  Sender: FDA-Public Use
  Company Number: US-GILEAD-2008-0014901

PATIENT
  Sex: Male

DRUGS (5)
  1. VIREAD [Suspect]
     Indication: HIV INFECTION
     Dates: start: 20020701
  2. LAMIVUDINE [Concomitant]
     Indication: HIV INFECTION
     Dates: start: 20020701
  3. STAVUDINE [Concomitant]
     Indication: HIV INFECTION
     Dates: start: 20020701
  4. RITONAVIR [Concomitant]
     Indication: HIV INFECTION
     Dates: start: 20020701
  5. TRIMETHOPRIM + SULFAMETHOXAZOLE [Concomitant]
     Indication: PROPHYLAXIS
     Dates: start: 20020701

REACTIONS (2)
  - NEPHROPATHY [None]
  - RENAL FAILURE [None]
